FAERS Safety Report 7407010 (Version 2)
Quarter: 2014Q3

REPORT INFORMATION
  Report Type: Spontaneous
  Country: US (occurrence: None)
  Receive Date: 20100513
  Receipt Date: 20140813
  Transmission Date: 20150326
  Serious: Yes (Hospitalization, Other)
  Sender: FDA-Public Use
  Company Number: 2010S1002691

PATIENT
  Age: 58 Year
  Sex: Female

DRUGS (4)
  1. ATENOLOL. [Concomitant]
     Active Substance: ATENOLOL
  2. VERAPAMIL [Concomitant]
     Active Substance: VERAPAMIL HYDROCHLORIDE
  3. PHOSPHO-SODA [Suspect]
     Active Substance: SODIUM PHOSPHATE, DIBASIC\SODIUM PHOSPHATE, MONOBASIC
     Indication: COLONOSCOPY
     Dosage: PO
     Route: 048
     Dates: start: 20030904, end: 20030905
  4. GLIPIZIDE. [Concomitant]
     Active Substance: GLIPIZIDE

REACTIONS (20)
  - Blood pressure increased [None]
  - Venous pressure increased [None]
  - Anastomotic stenosis [None]
  - Blood parathyroid hormone increased [None]
  - Brachiocephalic vein stenosis [None]
  - Cardiac failure congestive [None]
  - Device occlusion [None]
  - Haemodialysis [None]
  - Malaise [None]
  - Fatigue [None]
  - Extrasystoles [None]
  - Hypoaesthesia [None]
  - Nephrogenic anaemia [None]
  - Hyperphosphataemia [None]
  - Venous stenosis [None]
  - Nausea [None]
  - Arteriovenous fistula site complication [None]
  - Renal failure [None]
  - Acidosis [None]
  - Blood calcium decreased [None]
